FAERS Safety Report 5344957-3 (Version None)
Quarter: 2007Q2

REPORT INFORMATION
  Report Type: 
  Country: None (occurrence: None)
  Receive Date: 20070416
  Receipt Date: 20061215
  Transmission Date: 20071010
  Serious: No
  Sender: FDA-Public Use
  Company Number: 2006SP004423

PATIENT
  Age: 66 Year
  Sex: Male
  Weight: 69.8539 kg

DRUGS (9)
  1. LUNESTA [Suspect]
     Indication: INSOMNIA
     Dosage: 3 MG;ORAL
     Route: 048
     Dates: start: 20061115, end: 20061204
  2. SIMVASTATIN [Concomitant]
  3. IMDUR [Concomitant]
  4. PLAVIX [Concomitant]
  5. ACETYLSALICYLIC ACID SRT [Concomitant]
  6. DOXYCYCLINE [Concomitant]
  7. PROSCAR [Concomitant]
  8. TAMSULOSIN HCL [Concomitant]
  9. ZETIA [Concomitant]

REACTIONS (2)
  - BREAST SWELLING [None]
  - NIPPLE PAIN [None]
